FAERS Safety Report 14102796 (Version 1)
Quarter: 2017Q4

REPORT INFORMATION
  Report Type: Spontaneous
  Country: US (occurrence: US)
  Receive Date: 20171018
  Receipt Date: 20171018
  Transmission Date: 20180321
  Serious: Yes (Hospitalization)
  Sender: FDA-Public Use
  Company Number: US-B.I. PHARMACEUTICALS,INC./RIDGEFIELD-2017-BI-055519

PATIENT
  Age: 55 Year
  Sex: Female

DRUGS (4)
  1. TRAMADOL. [Concomitant]
     Active Substance: TRAMADOL
     Indication: PAIN IN EXTREMITY
     Dosage: EVERY 6 HOURS;  FORM STRENGTH: 50MG; FORMULATION: TABLET
     Route: 048
     Dates: start: 201709
  2. MOBIC [Suspect]
     Active Substance: MELOXICAM
     Indication: FOOT FRACTURE
     Route: 048
     Dates: start: 20170929, end: 201710
  3. MOBIC [Suspect]
     Active Substance: MELOXICAM
     Indication: PAIN IN EXTREMITY
  4. CYMBALTA [Concomitant]
     Active Substance: DULOXETINE HYDROCHLORIDE
     Indication: DEPRESSION
     Dosage: ONCE DAILY;  FORM STRENGTH: 30MG; FORMULATION: TABLET
     Route: 048
     Dates: start: 201709

REACTIONS (5)
  - Apparent death [Recovered/Resolved]
  - Fall [Recovered/Resolved]
  - Off label use [Unknown]
  - Drug ineffective [Recovered/Resolved]
  - Hypotension [Not Recovered/Not Resolved]

NARRATIVE: CASE EVENT DATE: 201710
